FAERS Safety Report 21762739 (Version 1)
Quarter: 2022Q4

REPORT INFORMATION
  Report Type: Spontaneous
  Country: US (occurrence: US)
  Receive Date: 20221221
  Receipt Date: 20221221
  Transmission Date: 20230112
  Serious: No
  Sender: FDA-Public Use
  Company Number: US-INCYTE CORPORATION-2022IN012209

PATIENT

DRUGS (1)
  1. JAKAFI [Suspect]
     Active Substance: RUXOLITINIB
     Indication: Chronic kidney disease
     Dosage: 10 MILLIGRAM
     Route: 065
     Dates: start: 20221214

REACTIONS (2)
  - Haemoglobin decreased [Unknown]
  - Off label use [Unknown]

NARRATIVE: CASE EVENT DATE: 20221214
